FAERS Safety Report 7361125-4 (Version None)
Quarter: 2011Q1

REPORT INFORMATION
  Report Type: 
  Country: None (occurrence: None)
  Receive Date: 20110315
  Receipt Date: 20110315
  Transmission Date: 20110831
  Serious: No
  Sender: FDA-Public Use
  Company Number: None

PATIENT
  Sex: Female
  Weight: 68.9467 kg

DRUGS (1)
  1. RECLAST [Suspect]
     Indication: OSTEOPOROSIS
     Dosage: 1 MG ONE TIME
     Dates: start: 20090928

REACTIONS (3)
  - NO THERAPEUTIC RESPONSE [None]
  - JAW DISORDER [None]
  - PAIN IN JAW [None]
